FAERS Safety Report 5416421-4 (Version None)
Quarter: 2007Q3

REPORT INFORMATION
  Report Type: 
  Country: None (occurrence: None)
  Receive Date: 20070816
  Receipt Date: 20070807
  Transmission Date: 20080115
  Serious: Yes (Hospitalization, Other)
  Sender: FDA-Public Use
  Company Number: FR-JNJFOC-20070801779

PATIENT
  Age: 37 Year
  Sex: Female

DRUGS (2)
  1. TAVANIC [Suspect]
     Indication: LUNG DISORDER
     Route: 065
  2. FOLIC ACID [Concomitant]
     Route: 065

REACTIONS (2)
  - DELIRIUM [None]
  - HALLUCINATION [None]
